FAERS Safety Report 4398911-9 (Version None)
Quarter: 2004Q3

REPORT INFORMATION
  Report Type: 
  Country: None (occurrence: None)
  Receive Date: 20040712
  Receipt Date: 20040629
  Transmission Date: 20050211
  Serious: Yes (Hospitalization)
  Sender: FDA-Public Use
  Company Number: 2004221612US

PATIENT
  Age: 4 Year
  Sex: Male
  Weight: 7.3 kg

DRUGS (5)
  1. ATGAM [Suspect]
     Indication: APLASTIC ANAEMIA
     Dosage: 320 MG, QD, IV
     Route: 042
     Dates: start: 20040617, end: 20040624
  2. SOLU-MEDROL [Suspect]
     Dosage: 8 MG, QID, IV
     Route: 042
     Dates: start: 20040617, end: 20040624
  3. FORTAZ (CEFTAZIDIME) [Suspect]
     Dosage: IV
     Route: 042
     Dates: start: 20040627
  4. CYCLOSPORINE [Concomitant]
  5. LEUKINE (SARGRAMOSTIN) [Concomitant]

REACTIONS (9)
  - ABDOMINAL PAIN [None]
  - ASCITES [None]
  - CHILLS [None]
  - COMPUTERISED TOMOGRAM ABDOMEN ABNORMAL [None]
  - GALLBLADDER DISORDER [None]
  - INFECTION [None]
  - LOCALISED OEDEMA [None]
  - PYREXIA [None]
  - URTICARIA [None]
